FAERS Safety Report 8540483 (Version 4)
Quarter: 2012Q4

REPORT INFORMATION
  Report Type: 
  Country: US (occurrence: US)
  Receive Date: 20120502
  Receipt Date: 20120830
  Transmission Date: 20130627
  Serious: Yes (Hospitalization, Other)
  Sender: FDA-Public Use
  Company Number: US-BAYER-2012-042313

PATIENT
  Age: 40 Year
  Sex: Female
  Weight: 51.7 kg

DRUGS (4)
  1. YAZ [Suspect]
     Indication: CONTRACEPTION
     Dosage: UNK
     Dates: start: 20071104, end: 20071130
  2. YAZ [Suspect]
     Indication: CONTRACEPTION
     Dosage: UNK
     Dates: start: 2009
  3. ACYCLOVIR [ACICLOVIR] [Concomitant]
  4. ORTHO TRI CYCLEN [Concomitant]
     Dosage: UNK
     Dates: start: 20040722, end: 20071130

REACTIONS (8)
  - Pulmonary embolism [None]
  - Deep vein thrombosis [None]
  - Thrombosis [None]
  - Deep vein thrombosis [None]
  - Injury [None]
  - Pain [None]
  - Pain in extremity [None]
  - Oedema peripheral [None]
